FAERS Safety Report 8598764-9 (Version None)
Quarter: 2012Q3

REPORT INFORMATION
  Report Type: 
  Country: None (occurrence: None)
  Receive Date: 20120816
  Receipt Date: 20120806
  Transmission Date: 20120928
  Serious: Yes (Other)
  Sender: FDA-Public Use
  Company Number: US-ELI_LILLY_AND_COMPANY-US201203006995

PATIENT
  Sex: Female

DRUGS (2)
  1. FORTEO [Suspect]
     Indication: OSTEOPOROSIS
     Dosage: 20 UG, QD
     Route: 065
     Dates: start: 20120112
  2. FORTEO [Suspect]
     Dosage: 20 UG, QD
     Dates: start: 20120112

REACTIONS (13)
  - COUGH [None]
  - HYPOAESTHESIA ORAL [None]
  - MALAISE [None]
  - SINUSITIS [None]
  - SNEEZING [None]
  - DIZZINESS [None]
  - BLINDNESS TRANSIENT [None]
  - PALPITATIONS [None]
  - INFLUENZA [None]
  - PYREXIA [None]
  - RHINORRHOEA [None]
  - NASOPHARYNGITIS [None]
  - SINUS CONGESTION [None]
